FAERS Safety Report 5229605-5 (Version None)
Quarter: 2007Q1

REPORT INFORMATION
  Report Type: 
  Country: None (occurrence: None)
  Receive Date: 20070201
  Receipt Date: 20070124
  Transmission Date: 20070707
  Serious: Yes (Disabling)
  Sender: FDA-Public Use
  Company Number: 2007-00340

PATIENT
  Sex: Female

DRUGS (2)
  1. PROMETHAZINE HCL [Suspect]
     Indication: NAUSEA
     Dosage: 3-5 DAYS, INTRAVENOUS
     Route: 042
  2. PHENERGAN [Suspect]
     Indication: NAUSEA
     Dosage: 3-5 DAYS, INTRAVENOUS
     Route: 042

REACTIONS (6)
  - ANXIETY [None]
  - EMOTIONAL DISORDER [None]
  - IMPAIRED SELF-CARE [None]
  - INJURY [None]
  - LIMB INJURY [None]
  - PAIN [None]
